FAERS Safety Report 6811764-1 (Version None)
Quarter: 2010Q2

REPORT INFORMATION
  Report Type: 
  Country: None (occurrence: None)
  Receive Date: 20100628
  Receipt Date: 20100610
  Transmission Date: 20101027
  Serious: Yes (Hospitalization)
  Sender: FDA-Public Use
  Company Number: 1000014615

PATIENT
  Age: 56 Year
  Sex: Male

DRUGS (4)
  1. ESCITALOPRAM (ESCITALOPRAM OXALATE) (TABLETS) [Suspect]
     Indication: DEPRESSION
     Dosage: 1 DOSAGE FORMS (1 DOSAGE FORMS, 1 IN 1 D), ORAL
     Route: 048
     Dates: start: 20090701, end: 20100114
  2. OMEXEL [Suspect]
     Indication: BENIGN PROSTATIC HYPERPLASIA
     Dosage: 0.4 MG (0.4 MG, 1 IN 1 D), ORAL
     Route: 048
     Dates: end: 20100109
  3. RYTHMOL [Concomitant]
  4. SELOKEN [Concomitant]

REACTIONS (5)
  - CYTOLYTIC HEPATITIS [None]
  - EFFUSION [None]
  - GENERAL PHYSICAL HEALTH DETERIORATION [None]
  - HEPATIC STEATOSIS [None]
  - HEPATOMEGALY [None]
